FAERS Safety Report 24698286 (Version 4)
Quarter: 2025Q2

REPORT INFORMATION
  Report Type: Report from Study
  Country: CA (occurrence: CA)
  Receive Date: 20241204
  Receipt Date: 20250417
  Transmission Date: 20250717
  Serious: Yes (Death, Hospitalization)
  Sender: ABBVIE
  Company Number: CA-ABBVIE-5956595

PATIENT
  Sex: Male

DRUGS (15)
  1. VENETOCLAX [Suspect]
     Active Substance: VENETOCLAX
     Indication: Acute myeloid leukaemia
     Dosage: EVERY DAY
     Route: 048
     Dates: start: 20240213, end: 20240213
  2. VENETOCLAX [Suspect]
     Active Substance: VENETOCLAX
     Indication: Acute myeloid leukaemia
     Dosage: EVERY DAY
     Route: 048
     Dates: start: 20240214, end: 20240214
  3. VENETOCLAX [Suspect]
     Active Substance: VENETOCLAX
     Indication: Acute myeloid leukaemia
     Dosage: EVERY DAY
     Route: 048
     Dates: start: 20240215, end: 20240305
  4. VENETOCLAX [Suspect]
     Active Substance: VENETOCLAX
     Indication: Acute myeloid leukaemia
     Dosage: EVERY DAY
     Route: 048
     Dates: start: 20240309, end: 20240311
  5. VENETOCLAX [Suspect]
     Active Substance: VENETOCLAX
     Indication: Acute myeloid leukaemia
     Dosage: EVERY DAY
     Route: 048
     Dates: start: 20240312, end: 20240325
  6. VENETOCLAX [Suspect]
     Active Substance: VENETOCLAX
     Indication: Acute myeloid leukaemia
     Dosage: EVERY DAY
     Route: 048
     Dates: start: 20240423, end: 20240506
  7. VENETOCLAX [Suspect]
     Active Substance: VENETOCLAX
     Indication: Acute myeloid leukaemia
     Dosage: EVERY DAY
     Route: 048
     Dates: start: 20240613, end: 20240626
  8. VENETOCLAX [Suspect]
     Active Substance: VENETOCLAX
     Indication: Acute myeloid leukaemia
     Dosage: EVERY DAY
     Route: 048
     Dates: start: 20240711, end: 20240724
  9. VENETOCLAX [Suspect]
     Active Substance: VENETOCLAX
     Indication: Acute myeloid leukaemia
     Dosage: EVERY DAY
     Route: 048
     Dates: start: 20240815, end: 20240828
  10. AZACITIDINE [Suspect]
     Active Substance: AZACITIDINE
     Indication: Acute myeloid leukaemia
     Dosage: EVERY DAY
     Route: 065
     Dates: start: 20240213, end: 20240219
  11. AZACITIDINE [Suspect]
     Active Substance: AZACITIDINE
     Indication: Acute myeloid leukaemia
     Dosage: EVERY DAY
     Route: 065
     Dates: start: 20240312, end: 20240318
  12. AZACITIDINE [Suspect]
     Active Substance: AZACITIDINE
     Indication: Acute myeloid leukaemia
     Dosage: EVERY DAY
     Route: 065
     Dates: start: 20240423, end: 20240429
  13. AZACITIDINE [Suspect]
     Active Substance: AZACITIDINE
     Indication: Acute myeloid leukaemia
     Dosage: EVERY DAY
     Route: 065
     Dates: start: 20240613, end: 20240619
  14. AZACITIDINE [Suspect]
     Active Substance: AZACITIDINE
     Indication: Acute myeloid leukaemia
     Dosage: EVERY DAY
     Route: 065
     Dates: start: 20240711, end: 20240717
  15. AZACITIDINE [Suspect]
     Active Substance: AZACITIDINE
     Indication: Acute myeloid leukaemia
     Dosage: EVERY DAY
     Route: 065
     Dates: start: 20240815, end: 20240821

REACTIONS (1)
  - Colitis [Fatal]

NARRATIVE: CASE EVENT DATE: 20241007
